FAERS Safety Report 19062641 (Version 1)
Quarter: 2021Q1

REPORT INFORMATION
  Report Type: Spontaneous
  Country: US (occurrence: US)
  Receive Date: 20210325
  Receipt Date: 20210325
  Transmission Date: 20210420
  Serious: Yes (Hospitalization)
  Sender: FDA-Public Use
  Company Number: None

PATIENT
  Age: 62 Year
  Sex: Male

DRUGS (2)
  1. CAPECITABINE 500 MG [Suspect]
     Active Substance: CAPECITABINE
     Indication: NEUROENDOCRINE TUMOUR
     Dosage: FREQUENCY: 3 TABS BY MOUTH TWICE DAILY FOR 2 WEEKS ON, 2 WEEKS OFF
     Route: 048
     Dates: start: 20141229
  2. TEMOZOLOMIDE 100 MG [Suspect]
     Active Substance: TEMOZOLOMIDE
     Indication: NEUROENDOCRINE TUMOUR
     Dosage: FREQUENCY: 3 CAPSULES (300MG) BY MOUTH DAILY ON DAYS 10?14 OUR OF 28 DAY CYCLE
     Route: 048
     Dates: start: 20150220

REACTIONS (1)
  - Stent placement [None]

NARRATIVE: CASE EVENT DATE: 20210323
